FAERS Safety Report 8524002-9 (Version None)
Quarter: 2012Q3

REPORT INFORMATION
  Report Type: 
  Country: None (occurrence: None)
  Receive Date: 20120720
  Receipt Date: 20120710
  Transmission Date: 20120928
  Serious: Yes (Hospitalization)
  Sender: FDA-Public Use
  Company Number: JP-ASTRAZENECA-2012SE42007

PATIENT
  Age: 78 Year
  Sex: Male

DRUGS (8)
  1. DAIKENTYUTO [Concomitant]
     Dates: start: 20120514, end: 20120607
  2. EBIOS [Concomitant]
     Dates: start: 20120514, end: 20120607
  3. SEROQUEL [Suspect]
     Dosage: 12.5 MG (HALF OF 25 MG TABLET) DAILY
     Route: 048
  4. MAGLAX [Concomitant]
     Route: 048
     Dates: start: 20120426, end: 20120607
  5. AMOBAN [Concomitant]
     Dates: start: 20120501, end: 20120607
  6. LASIX [Concomitant]
     Dates: start: 20120514, end: 20120607
  7. SEROQUEL [Suspect]
     Indication: MENTAL DISORDER
     Route: 048
     Dates: start: 20120529, end: 20120607
  8. OGIKENCHUTO [Concomitant]
     Route: 048

REACTIONS (2)
  - ENTEROCOLITIS HAEMORRHAGIC [None]
  - INTENTIONAL DRUG MISUSE [None]
